FAERS Safety Report 10601560 (Version 1)
Quarter: 2014Q4

REPORT INFORMATION
  Report Type: Spontaneous
  Country: US (occurrence: US)
  Receive Date: 20141124
  Receipt Date: 20141124
  Transmission Date: 20150529
  Serious: No
  Sender: FDA-Public Use
  Company Number: US-009507513-1410USA012125

PATIENT
  Age: 18 Year
  Sex: Female
  Weight: 73.47 kg

DRUGS (1)
  1. NEXPLANON [Suspect]
     Active Substance: ETONOGESTREL
     Indication: CONTRACEPTION
     Dosage: 68 MG ETONOGESTREL, UNK
     Route: 059
     Dates: start: 20140520, end: 20141017

REACTIONS (3)
  - Malaise [Unknown]
  - Device breakage [Recovered/Resolved]
  - Hormone level abnormal [Unknown]

NARRATIVE: CASE EVENT DATE: 2014
